FAERS Safety Report 9140877 (Version 4)
Quarter: 2014Q1

REPORT INFORMATION
  Report Type: Spontaneous
  Country: DK (occurrence: DK)
  Receive Date: 20130305
  Receipt Date: 20140131
  Transmission Date: 20141002
  Serious: Yes (Life-Threatening, Hospitalization)
  Sender: FDA-Public Use
  Company Number: DK-NAPPMUNDI-GBR-2013-0013279

PATIENT
  Age: 64 Year
  Sex: Female
  Weight: 85 kg

DRUGS (11)
  1. OXYCONTIN DEPOTTABLETTER [Suspect]
     Indication: PAIN
     Dosage: 30 MG, AM
     Route: 048
     Dates: start: 20051108, end: 20130108
  2. OXYCONTIN DEPOTTABLETTER [Suspect]
     Dosage: 20 MG, PM
     Route: 048
  3. OXYNORM KAPSEL, HARD [Suspect]
     Indication: PAIN
     Dosage: 5 MG, QID PRN
     Route: 048
     Dates: start: 20051124, end: 20130108
  4. FURIX [Concomitant]
     Dates: start: 200801
  5. ALENDRONATE [Concomitant]
     Dosage: UNK
     Dates: start: 20110902
  6. PAMOL [Concomitant]
     Dates: start: 2008
  7. CITALOPRAM [Concomitant]
     Dates: start: 20111215, end: 20130402
  8. SERETIDE [Concomitant]
     Dates: start: 20110902
  9. SPIRIVA [Concomitant]
     Dates: start: 20121011
  10. VENTOLINE [Concomitant]
     Dates: start: 20111003
  11. METOPROLOL [Concomitant]
     Dates: start: 20071217, end: 20130319

REACTIONS (2)
  - Endotracheal intubation [Recovered/Resolved]
  - Loss of consciousness [Recovered/Resolved]
